FAERS Safety Report 21083405 (Version 1)
Quarter: 2022Q3

REPORT INFORMATION
  Report Type: Spontaneous
  Country: US (occurrence: None)
  Receive Date: 20220714
  Receipt Date: 20220714
  Transmission Date: 20221026
  Serious: Yes (Hospitalization)
  Sender: FDA-Public Use
  Company Number: None

PATIENT
  Age: 65 Year
  Sex: Male

DRUGS (1)
  1. CHLORTHALIDONE [Suspect]
     Active Substance: CHLORTHALIDONE
     Indication: Hypertension
     Dates: start: 20220607, end: 20220620

REACTIONS (4)
  - Disease progression [None]
  - Blood urea increased [None]
  - Blood creatinine increased [None]
  - Acute kidney injury [None]

NARRATIVE: CASE EVENT DATE: 20220620
